FAERS Safety Report 6611269-7 (Version None)
Quarter: 2010Q1

REPORT INFORMATION
  Report Type: 
  Country: None (occurrence: None)
  Receive Date: 20100301
  Receipt Date: 20100301
  Transmission Date: 20100710
  Serious: No
  Sender: FDA-Public Use
  Company Number: None

PATIENT
  Sex: Female
  Weight: 58.9676 kg

DRUGS (1)
  1. CHOLESTYRAMINE [Suspect]
     Dosage: 4GM 1X PER DAY PO
     Route: 048
     Dates: start: 20100223, end: 20100225

REACTIONS (3)
  - GINGIVAL SWELLING [None]
  - SWOLLEN TONGUE [None]
  - TONGUE ULCERATION [None]
